FAERS Safety Report 22184032 (Version 7)
Quarter: 2024Q1

REPORT INFORMATION
  Report Type: Report from Study
  Country: FR (occurrence: FR)
  Receive Date: 20230407
  Receipt Date: 20240109
  Transmission Date: 20240410
  Serious: Yes (Hospitalization)
  Sender: FDA-Public Use
  Company Number: FR-JNJFOC-20230376235

PATIENT
  Age: 41 Year
  Sex: Male
  Weight: 87 kg

DRUGS (18)
  1. SPRAVATO [Suspect]
     Active Substance: ESKETAMINE
     Indication: Depression
     Dates: start: 20211026
  2. SPRAVATO [Suspect]
     Active Substance: ESKETAMINE
     Dosage: CLASSICAL SCHEDULE, 16 DOSES
     Dates: start: 20221016
  3. SPRAVATO [Suspect]
     Active Substance: ESKETAMINE
     Dosage: 56 MG, 1 DOSE
     Dates: start: 20221026, end: 20221026
  4. SPRAVATO [Suspect]
     Active Substance: ESKETAMINE
     Dosage: 84 MG, 7 DOSES
     Dates: start: 20221028, end: 20221117
  5. SPRAVATO [Suspect]
     Active Substance: ESKETAMINE
     Dosage: 84 MG, 4 DOSES
     Dates: start: 20221122, end: 20221213
  6. SPRAVATO [Suspect]
     Active Substance: ESKETAMINE
     Dosage: 84 MG, 4 DOSES
     Dates: start: 20221228, end: 20230207
  7. SPRAVATO [Suspect]
     Active Substance: ESKETAMINE
     Dosage: 84 MG, 1 DOSE, PREVIOUSLY REPORTED AS 1 IN 1 WEEKS
     Dates: start: 20230223, end: 20230223
  8. SPRAVATO [Suspect]
     Active Substance: ESKETAMINE
     Dosage: 84 MG, 2 DOSES
     Dates: start: 20230307, end: 20230321
  9. SPRAVATO [Suspect]
     Active Substance: ESKETAMINE
     Dosage: 84 MG, 1 DOSE
     Dates: start: 20230404, end: 20230404
  10. SPRAVATO [Suspect]
     Active Substance: ESKETAMINE
     Dosage: 84 MG, 1 DOSE
     Dates: start: 20230413, end: 20230413
  11. SPRAVATO [Suspect]
     Active Substance: ESKETAMINE
     Dosage: 84 MG, 7 DOSES
     Dates: start: 20230427, end: 20230718
  12. SPRAVATO [Suspect]
     Active Substance: ESKETAMINE
     Dosage: 84 MG, 1 DOSE
     Dates: start: 20230727, end: 20230727
  13. SPRAVATO [Suspect]
     Active Substance: ESKETAMINE
     Dosage: 84 MG, 6 DOSES
     Dates: start: 20230817, end: 20231130
  14. FLUOXETINE [Concomitant]
     Active Substance: FLUOXETINE HYDROCHLORIDE
     Indication: Depression
     Route: 048
     Dates: start: 20221026
  15. MIDODRINE [Concomitant]
     Active Substance: MIDODRINE
     Indication: Orthostatic hypotension
     Dates: start: 202005
  16. SIMVASTATIN [Concomitant]
     Active Substance: SIMVASTATIN
     Indication: Hypercholesterolaemia
     Dates: start: 202107
  17. POLYETHYLENE GLYCOLS [Concomitant]
     Active Substance: POLYETHYLENE GLYCOLS
     Indication: Constipation
     Route: 048
     Dates: start: 202003
  18. TAHOR [Concomitant]
     Active Substance: ATORVASTATIN CALCIUM
     Indication: Dyslipidaemia
     Route: 048
     Dates: start: 202107

REACTIONS (2)
  - Pancreatitis [Recovered/Resolved]
  - Cholecystitis [Recovered/Resolved]

NARRATIVE: CASE EVENT DATE: 20230213
